FAERS Safety Report 7279906-4 (Version None)
Quarter: 2011Q1

REPORT INFORMATION
  Report Type: 
  Country: None (occurrence: None)
  Receive Date: 20110208
  Receipt Date: 20101220
  Transmission Date: 20110831
  Serious: Yes (Hospitalization, Other)
  Sender: FDA-Public Use
  Company Number: US-BAYER-201016066NA

PATIENT
  Sex: Female
  Weight: 63.636 kg

DRUGS (7)
  1. YAZ [Suspect]
     Indication: PRODUCT USED FOR UNKNOWN INDICATION
     Route: 048
  2. YASMIN [Suspect]
     Indication: PRODUCT USED FOR UNKNOWN INDICATION
     Route: 048
     Dates: start: 20020101
  3. ZOLOFT [Concomitant]
     Route: 065
  4. SYNTHROID [Concomitant]
     Dosage: 50 ?G, UNK
     Route: 048
     Dates: start: 20050812, end: 20100713
  5. GLUCOPHAGE [Concomitant]
     Route: 065
  6. XANAX [Concomitant]
     Route: 065
  7. YASMIN [Suspect]
     Route: 048
     Dates: start: 20020101, end: 20070101

REACTIONS (3)
  - PANCREATITIS [None]
  - DEPRESSION [None]
  - CHOLECYSTECTOMY [None]
